FAERS Safety Report 4963056-3 (Version None)
Quarter: 2006Q1

REPORT INFORMATION
  Report Type: 
  Country: None (occurrence: None)
  Receive Date: 20060331
  Receipt Date: 20060325
  Transmission Date: 20060701
  Serious: Yes (Death)
  Sender: FDA-Public Use
  Company Number: KADN20060009

PATIENT
  Age: 50 Year
  Sex: Female
  Weight: 68.0396 kg

DRUGS (1)
  1. KADIAN [Suspect]
     Indication: PAIN
     Dosage: PO
     Route: 048

REACTIONS (1)
  - ACCIDENTAL OVERDOSE [None]
